FAERS Safety Report 25747671 (Version 1)
Quarter: 2025Q3

REPORT INFORMATION
  Report Type: Spontaneous
  Country: US (occurrence: US)
  Receive Date: 20250901
  Receipt Date: 20250901
  Transmission Date: 20251020
  Serious: No
  Sender: BAUSCH AND LOMB
  Company Number: US-BAUSCH-BH-2025-016684

PATIENT
  Age: 18 Year
  Sex: Female

DRUGS (1)
  1. JUBLIA [Suspect]
     Active Substance: EFINACONAZOLE
     Indication: Fungal infection
     Route: 061

REACTIONS (7)
  - Fungal infection [Unknown]
  - Disease recurrence [Unknown]
  - Infection [Unknown]
  - Drug effect less than expected [Unknown]
  - Product prescribing issue [Unknown]
  - Device issue [Unknown]
  - Accidental exposure to product [Unknown]
